FAERS Safety Report 19352067 (Version 1)
Quarter: 2021Q2

REPORT INFORMATION
  Report Type: Spontaneous
  Country: US (occurrence: US)
  Receive Date: 20210531
  Receipt Date: 20210531
  Transmission Date: 20210717
  Serious: Yes (Other)
  Sender: FDA-Public Use
  Company Number: US-ROCHE-2676939

PATIENT
  Sex: Male
  Weight: 108.41 kg

DRUGS (2)
  1. OCREVUS [Suspect]
     Active Substance: OCRELIZUMAB
     Indication: MULTIPLE SCLEROSIS
     Route: 042
     Dates: start: 201712
  2. OCREVUS [Suspect]
     Active Substance: OCRELIZUMAB
     Indication: RELAPSING MULTIPLE SCLEROSIS
     Dosage: ONGOING: NO?300 MG, DAY 1 AND DAY 15 AND 600 MG, EVERY 6 MONTHS
     Route: 042
     Dates: start: 20181214, end: 20200107

REACTIONS (3)
  - Toe amputation [Not Recovered/Not Resolved]
  - Venous stenosis [Unknown]
  - Infection [Unknown]
